FAERS Safety Report 4696569-2 (Version None)
Quarter: 2005Q2

REPORT INFORMATION
  Report Type: 
  Country: None (occurrence: None)
  Receive Date: 20050620
  Receipt Date: 20050607
  Transmission Date: 20051028
  Serious: Yes (Hospitalization, Disabling)
  Sender: FDA-Public Use
  Company Number: MK200506-0062-1

PATIENT
  Age: 46 Year
  Sex: Female

DRUGS (2)
  1. METHADOSE [Suspect]
     Indication: DRUG DEPENDENCE
     Dosage: 80 MG, Q, D, PO
     Route: 048
  2. COCAINE [Suspect]
     Indication: DRUG ABUSER
     Dosage: INJ/INH
     Route: 055

REACTIONS (15)
  - ANOXIC ENCEPHALOPATHY [None]
  - BUNDLE BRANCH BLOCK LEFT [None]
  - CARDIAC ARREST [None]
  - COMA [None]
  - DIZZINESS [None]
  - DRUG ABUSER [None]
  - ELECTROCARDIOGRAM T WAVE INVERSION [None]
  - FALL [None]
  - GRAND MAL CONVULSION [None]
  - HYPOKALAEMIA [None]
  - LOSS OF CONSCIOUSNESS [None]
  - SYNCOPE [None]
  - TORSADE DE POINTES [None]
  - VENTRICULAR DYSFUNCTION [None]
  - VENTRICULAR TACHYCARDIA [None]
